FAERS Safety Report 6367250-9 (Version None)
Quarter: 2009Q3

REPORT INFORMATION
  Report Type: 
  Country: None (occurrence: None)
  Receive Date: 20090921
  Receipt Date: 20090914
  Transmission Date: 20100115
  Serious: Yes (Hospitalization)
  Sender: FDA-Public Use
  Company Number: US-MERCK-0909USA01804

PATIENT
  Age: 11 Year
  Sex: Male

DRUGS (3)
  1. SINGULAIR [Suspect]
     Indication: HYPERSENSITIVITY
     Route: 048
     Dates: start: 20031001, end: 20080501
  2. SINGULAIR [Suspect]
     Indication: ASTHMA
     Route: 048
     Dates: start: 20031001, end: 20080501
  3. ZYRTEC [Concomitant]
     Route: 065

REACTIONS (2)
  - ANKLE FRACTURE [None]
  - SUICIDE ATTEMPT [None]
